FAERS Safety Report 8391778-3 (Version None)
Quarter: 2012Q2

REPORT INFORMATION
  Report Type: 
  Country: None (occurrence: None)
  Receive Date: 20120529
  Receipt Date: 20120524
  Transmission Date: 20120825
  Serious: Yes (Hospitalization)
  Sender: FDA-Public Use
  Company Number: US-ROCHE-1072413

PATIENT
  Sex: Female

DRUGS (3)
  1. XOLAIR [Suspect]
     Indication: PRODUCT USED FOR UNKNOWN INDICATION
  2. LEVOXYL [Concomitant]
  3. MYLANTA DOUBLE STRENGTH [Concomitant]

REACTIONS (2)
  - PNEUMONIA [None]
  - CLOSTRIDIAL INFECTION [None]
